FAERS Safety Report 19761648 (Version 1)
Quarter: 2021Q3

REPORT INFORMATION
  Report Type: Spontaneous
  Country: US (occurrence: US)
  Receive Date: 20210827
  Receipt Date: 20210827
  Transmission Date: 20211014
  Serious: Yes (Death, Other)
  Sender: FDA-Public Use
  Company Number: US-GLAXOSMITHKLINE-US2021GSK181953

PATIENT
  Sex: Female

DRUGS (5)
  1. ZANTAC [Suspect]
     Active Substance: RANITIDINE HYDROCHLORIDE
     Indication: DERMATITIS
     Dosage: 300 MG, QD
     Route: 065
     Dates: start: 201301, end: 201901
  2. RANITIDINE. [Suspect]
     Active Substance: RANITIDINE
     Indication: DERMATITIS
     Dosage: 300 MG, QD
     Route: 065
     Dates: start: 201301, end: 201901
  3. RANITIDINE CAPSULE [Suspect]
     Active Substance: RANITIDINE
     Indication: DERMATITIS
     Dosage: 300 MG, QD
     Route: 065
     Dates: start: 201301, end: 201901
  4. ZANTAC [Suspect]
     Active Substance: RANITIDINE HYDROCHLORIDE
     Indication: DERMATITIS
     Dosage: 300 MG, QD
     Route: 065
     Dates: start: 201301, end: 201901
  5. RANITIDINE. [Suspect]
     Active Substance: RANITIDINE
     Indication: DERMATITIS
     Dosage: 300 MG, QD
     Route: 065
     Dates: start: 201301, end: 201901

REACTIONS (3)
  - Neoplasm malignant [Fatal]
  - Gastrointestinal carcinoma [Unknown]
  - Gastric cancer [Unknown]
